FAERS Safety Report 16162205 (Version 1)
Quarter: 2019Q2

REPORT INFORMATION
  Report Type: Report from Study
  Country: DE (occurrence: DE)
  Receive Date: 20190405
  Receipt Date: 20190405
  Transmission Date: 20190711
  Serious: Yes (Hospitalization)
  Sender: FDA-Public Use
  Company Number: DE-TEVA-2018-DE-987379

PATIENT
  Age: 64 Year
  Sex: Female

DRUGS (2)
  1. COPAXONE [Suspect]
     Active Substance: GLATIRAMER ACETATE
     Indication: MULTIPLE SCLEROSIS
     Dates: start: 20150417
  2. CORTISON [Suspect]
     Active Substance: CORTISONE ACETATE
     Indication: MULTIPLE SCLEROSIS
     Dosage: 1000 MILLIGRAM DAILY;
     Route: 042

REACTIONS (3)
  - Lower limb fracture [Unknown]
  - Abdominal discomfort [Recovered/Resolved]
  - Fall [Recovered/Resolved]

NARRATIVE: CASE EVENT DATE: 20180313
